FAERS Safety Report 5619601-8 (Version None)
Quarter: 2008Q1

REPORT INFORMATION
  Report Type: 
  Country: None (occurrence: None)
  Receive Date: 20080208
  Receipt Date: 20080130
  Transmission Date: 20080703
  Serious: No
  Sender: FDA-Public Use
  Company Number: US-BAYER-200812648NA

PATIENT
  Sex: Female

DRUGS (1)
  1. YAZ [Suspect]
     Route: 048

REACTIONS (1)
  - PREGNANCY ON ORAL CONTRACEPTIVE [None]
